FAERS Safety Report 4673293-3 (Version None)
Quarter: 2005Q2

REPORT INFORMATION
  Report Type: 
  Country: None (occurrence: None)
  Receive Date: 20050524
  Receipt Date: 20050524
  Transmission Date: 20051028
  Serious: Yes (Hospitalization)
  Sender: FDA-Public Use
  Company Number: None

PATIENT
  Age: 64 Year
  Sex: Male
  Weight: 109.7705 kg

DRUGS (12)
  1. FUROSEMIDE [Suspect]
     Indication: CARDIAC FAILURE CONGESTIVE
     Dosage: 120 MG ORAL TWICE DAILY
     Route: 048
     Dates: start: 20040823, end: 20050212
  2. FUROSEMIDE [Suspect]
     Indication: HYPERTENSION
     Dosage: 120 MG ORAL TWICE DAILY
     Route: 048
     Dates: start: 20040823, end: 20050212
  3. ATENOLOL [Suspect]
     Indication: CARDIAC FAILURE CONGESTIVE
     Dosage: 100 MG
     Dates: start: 20040823, end: 20050212
  4. ATENOLOL [Suspect]
     Indication: HYPERTENSION
     Dosage: 100 MG
     Dates: start: 20040823, end: 20050212
  5. DILTIAZEM [Suspect]
     Indication: CARDIAC FAILURE CONGESTIVE
     Dosage: 180 MG DAILY
     Dates: start: 20040823, end: 20050212
  6. DILTIAZEM [Suspect]
     Indication: HYPERTENSION
     Dosage: 180 MG DAILY
     Dates: start: 20040823, end: 20050212
  7. GEMFIBROZIL [Concomitant]
  8. SIMVASTATIN [Concomitant]
  9. LISINOPRIL [Concomitant]
  10. AMITRIPTYLINE HCL [Concomitant]
  11. TERAZOSIN HCL [Concomitant]
  12. INSULIN NPH HUMAN 100 U/ML INJ NOVOLIN N [Concomitant]

REACTIONS (7)
  - ATRIOVENTRICULAR BLOCK COMPLETE [None]
  - BLOOD PRESSURE DECREASED [None]
  - DIZZINESS [None]
  - DYSPNOEA [None]
  - HEART RATE DECREASED [None]
  - HYPOVOLAEMIA [None]
  - RENAL FAILURE ACUTE [None]
